FAERS Safety Report 18783623 (Version 2)
Quarter: 2021Q1

REPORT INFORMATION
  Report Type: Spontaneous
  Country: FR (occurrence: FR)
  Receive Date: 20210125
  Receipt Date: 20210128
  Transmission Date: 20210419
  Serious: Yes (Other)
  Sender: FDA-Public Use
  Company Number: FR-BAXTER-2021BAX001627

PATIENT
  Age: 65 Year
  Sex: Female

DRUGS (4)
  1. DOXIL [Suspect]
     Active Substance: DOXORUBICIN HYDROCHLORIDE
     Indication: OVARIAN CANCER
     Dosage: SECOND LINE: FIRST CYCLE; CYCLICAL
     Route: 042
     Dates: start: 201405, end: 201407
  2. TRABECTEDIN [Suspect]
     Active Substance: TRABECTEDIN
     Route: 042
     Dates: start: 201411, end: 201502
  3. DOXIL [Suspect]
     Active Substance: DOXORUBICIN HYDROCHLORIDE
     Route: 042
     Dates: start: 201411, end: 201502
  4. TRABECTEDIN [Suspect]
     Active Substance: TRABECTEDIN
     Indication: OVARIAN CANCER
     Dosage: SECOND LINE: FIRST CYCLE; CYCLICAL
     Route: 042
     Dates: start: 201405, end: 201407

REACTIONS (7)
  - Nausea [Unknown]
  - Ascites [Unknown]
  - Neutropenia [Unknown]
  - Pneumonia [Unknown]
  - Lung disorder [Unknown]
  - Subileus [Recovered/Resolved]
  - Asthenia [Unknown]

NARRATIVE: CASE EVENT DATE: 2014
